FAERS Safety Report 21441022 (Version 2)
Quarter: 2022Q4

REPORT INFORMATION
  Report Type: Spontaneous
  Country: HU (occurrence: HU)
  Receive Date: 20221011
  Receipt Date: 20221017
  Transmission Date: 20230113
  Serious: Yes (Other)
  Sender: FDA-Public Use
  Company Number: HU-ANIPHARMA-2022-HU-000007

PATIENT
  Sex: Female

DRUGS (10)
  1. ANASTROZOLE [Suspect]
     Active Substance: ANASTROZOLE
     Indication: Intraductal proliferative breast lesion
     Dosage: UNK (FOR 5 YEARS) (UNTIL THE BEGINNING OF 2018)
     Route: 065
     Dates: start: 2013, end: 2018
  2. CALCIUM [Concomitant]
     Active Substance: CALCIUM
     Route: 065
     Dates: start: 20200303
  3. EPIRUBICIN [Suspect]
     Active Substance: EPIRUBICIN
     Route: 065
     Dates: end: 20150303
  4. LETROZOLE [Suspect]
     Active Substance: LETROZOLE
     Dosage: 2.5 MG DAILY / DOSE TEXT: UNKNOWN
     Route: 065
  5. PACLITAXEL [Suspect]
     Active Substance: PACLITAXEL
     Route: 065
     Dates: end: 20150303
  6. TRASTUZUMAB [Concomitant]
     Active Substance: TRASTUZUMAB
     Route: 065
  7. KISQALI [Concomitant]
     Active Substance: RIBOCICLIB
     Dosage: 600 MG UNK
     Route: 065
     Dates: start: 202003
  8. CYCLOPHOSPHAMIDE [Concomitant]
     Active Substance: CYCLOPHOSPHAMIDE
     Route: 065
     Dates: end: 20150303
  9. ZOLEDRONIC ACID [Suspect]
     Active Substance: ZOLEDRONIC ACID
     Dosage: 4 MG MONTH
     Route: 065
     Dates: start: 202003
  10. VITAMIN D [Concomitant]
     Active Substance: VITAMIN D NOS
     Route: 065
     Dates: start: 20200303

REACTIONS (16)
  - White blood cell count increased [Recovered/Resolved]
  - Mean cell haemoglobin increased [Unknown]
  - Haematocrit decreased [Unknown]
  - Blood glucose increased [Unknown]
  - Neutrophil count decreased [Unknown]
  - White blood cell count increased [Unknown]
  - Mean cell volume increased [Unknown]
  - Cough [Recovered/Resolved]
  - Metastasis [Recovering/Resolving]
  - Metastases to bone [Recovering/Resolving]
  - Hydrothorax [Recovering/Resolving]
  - Metastases to pleura [Recovering/Resolving]
  - Haemoglobin decreased [Recovering/Resolving]
  - Red blood cell count decreased [Unknown]
  - Lymphocyte count decreased [Unknown]
  - Monocyte count increased [Unknown]

NARRATIVE: CASE EVENT DATE: 20190101
